FAERS Safety Report 18925938 (Version 1)
Quarter: 2021Q1

REPORT INFORMATION
  Report Type: Spontaneous
  Country: US (occurrence: US)
  Receive Date: 20210223
  Receipt Date: 20210223
  Transmission Date: 20210420
  Serious: No
  Sender: FDA-Public Use
  Company Number: US-AKCEA THERAPEUTICS-2021IS001007

PATIENT
  Age: 70 Year
  Sex: Female

DRUGS (12)
  1. CLONAZEPAM. [Concomitant]
     Active Substance: CLONAZEPAM
     Route: 065
  2. LIPITOR [Concomitant]
     Active Substance: ATORVASTATIN CALCIUM
     Route: 065
  3. MULTIVITAMIN 50 PLUS [Concomitant]
     Route: 065
  4. VITAMIN E /00110501/ [Concomitant]
     Active Substance: TOCOPHEROL
     Route: 065
  5. LISINOPRIL. [Concomitant]
     Active Substance: LISINOPRIL
     Route: 065
  6. GABAPENTIN. [Concomitant]
     Active Substance: GABAPENTIN
     Route: 065
  7. VITAMIN D?400 [Concomitant]
     Route: 065
  8. ZOLOFT [Concomitant]
     Active Substance: SERTRALINE HYDROCHLORIDE
     Route: 065
  9. DIFLUNISAL. [Concomitant]
     Active Substance: DIFLUNISAL
     Route: 065
  10. ISSD (INTEGRATED SYRINGE SAFETY DEVICE) [Suspect]
     Active Substance: DEVICE
  11. CALCI?CHEW [Concomitant]
     Route: 065
  12. TEGSEDI [Suspect]
     Active Substance: INOTERSEN SODIUM
     Indication: HEREDITARY NEUROPATHIC AMYLOIDOSIS
     Route: 058

REACTIONS (1)
  - Injection site bruising [Unknown]
